FAERS Safety Report 18598247 (Version 1)
Quarter: 2020Q4

REPORT INFORMATION
  Report Type: Spontaneous
  Country: US (occurrence: US)
  Receive Date: 20201210
  Receipt Date: 20201210
  Transmission Date: 20210114
  Serious: No
  Sender: FDA-Public Use
  Company Number: US-JNJFOC-20201201582

PATIENT
  Sex: Female

DRUGS (8)
  1. PEPCID [Suspect]
     Active Substance: FAMOTIDINE
     Indication: NAUSEA
  2. TUMS [Concomitant]
     Active Substance: CALCIUM CARBONATE
     Indication: NAUSEA
  3. PEPCID [Suspect]
     Active Substance: FAMOTIDINE
     Indication: DYSPEPSIA
     Route: 061
  4. B6 [Concomitant]
     Active Substance: PYRIDOXINE HYDROCHLORIDE
     Indication: NAUSEA
  5. UNISOM SLEEPMELTS [Concomitant]
     Active Substance: DIPHENHYDRAMINE HYDROCHLORIDE
     Indication: NAUSEA
  6. B6 [Concomitant]
     Active Substance: PYRIDOXINE HYDROCHLORIDE
     Indication: DYSPEPSIA
     Route: 065
  7. UNISOM SLEEPMELTS [Concomitant]
     Active Substance: DIPHENHYDRAMINE HYDROCHLORIDE
     Indication: DYSPEPSIA
     Route: 065
  8. TUMS [Concomitant]
     Active Substance: CALCIUM CARBONATE
     Indication: DYSPEPSIA
     Route: 065

REACTIONS (1)
  - Exposure during pregnancy [Unknown]
